FAERS Safety Report 9703211 (Version 3)
Quarter: 2014Q1

REPORT INFORMATION
  Report Type: Spontaneous
  Country: US (occurrence: US)
  Receive Date: 20131122
  Receipt Date: 20140103
  Transmission Date: 20141002
  Serious: Yes (Hospitalization, Other)
  Sender: FDA-Public Use
  Company Number: US-BIOGENIDEC-2013BI112622

PATIENT
  Sex: Female

DRUGS (1)
  1. TYSABRI [Suspect]
     Indication: MULTIPLE SCLEROSIS
     Route: 042
     Dates: start: 20070605

REACTIONS (3)
  - Diverticulitis [Recovered/Resolved]
  - Biliary dilatation [Not Recovered/Not Resolved]
  - Abdominal pain upper [Not Recovered/Not Resolved]
